FAERS Safety Report 8302835-1 (Version None)
Quarter: 2012Q2

REPORT INFORMATION
  Report Type: 
  Country: None (occurrence: None)
  Receive Date: 20120420
  Receipt Date: 20120406
  Transmission Date: 20120825
  Serious: Yes (Other)
  Sender: FDA-Public Use
  Company Number: PL-ROCHE-1057947

PATIENT
  Age: 39 Year
  Sex: Male

DRUGS (3)
  1. RIBAVIRIN [Suspect]
     Indication: PRODUCT USED FOR UNKNOWN INDICATION
  2. INTERFERON ALFA [Suspect]
     Indication: PRODUCT USED FOR UNKNOWN INDICATION
  3. MABTHERA [Suspect]
     Indication: PRODUCT USED FOR UNKNOWN INDICATION

REACTIONS (19)
  - SPLENOMEGALY [None]
  - FEBRILE NEUTROPENIA [None]
  - B-CELL LYMPHOMA [None]
  - ASCITES [None]
  - FULL BLOOD COUNT ABNORMAL [None]
  - SUBCLAVIAN VEIN THROMBOSIS [None]
  - PANCYTOPENIA [None]
  - HEPATOMEGALY [None]
  - HISTIOCYTOSIS HAEMATOPHAGIC [None]
  - BODY TEMPERATURE INCREASED [None]
  - OEDEMA PERIPHERAL [None]
  - BONE MARROW FAILURE [None]
  - MUCOSAL EROSION [None]
  - SPLEEN DISORDER [None]
  - BONE MARROW TOXICITY [None]
  - WEIGHT DECREASED [None]
  - PANCREATIC DISORDER [None]
  - HYPERHIDROSIS [None]
  - TRANSAMINASES INCREASED [None]
